FAERS Safety Report 10410933 (Version 1)
Quarter: 2014Q2

REPORT INFORMATION
  Report Type: Spontaneous
  Country: US (occurrence: None)
  Receive Date: 20140604
  Receipt Date: 20140604
  Transmission Date: 20141212
  Serious: Yes (Other)
  Sender: FDA-Public Use
  Company Number: 20100521CINRY1487

PATIENT
  Age: 30 Year
  Sex: Female

DRUGS (2)
  1. CINRYZE [Suspect]
     Indication: HEREDITARY ANGIOEDEMA
     Route: 042
     Dates: start: 20091119
  2. CINRYZE [Suspect]
     Indication: PROPHYLAXIS
     Route: 042
     Dates: start: 20091119

REACTIONS (8)
  - Swollen tongue [None]
  - Pharyngeal oedema [None]
  - Arthralgia [None]
  - Chills [None]
  - Nausea [None]
  - Headache [None]
  - Infusion related reaction [None]
  - Hereditary angioedema [None]
